FAERS Safety Report 10219235 (Version 1)
Quarter: 2014Q2

REPORT INFORMATION
  Report Type: Report from Study
  Country: US (occurrence: US)
  Receive Date: 20140605
  Receipt Date: 20140605
  Transmission Date: 20141212
  Serious: Yes (Death)
  Sender: FDA-Public Use
  Company Number: US-SA-2014SA072548

PATIENT
  Age: 77 Year
  Sex: Female

DRUGS (1)
  1. RENVELA [Suspect]
     Indication: RENAL FAILURE CHRONIC
     Dosage: 800 MG, 2-3 TABS PER DAY
     Route: 048
     Dates: end: 20140527

REACTIONS (1)
  - Death [Fatal]
